FAERS Safety Report 10488853 (Version 1)
Quarter: 2014Q4

REPORT INFORMATION
  Report Type: Spontaneous
  Country: CN (occurrence: CN)
  Receive Date: 20141002
  Receipt Date: 20141002
  Transmission Date: 20150528
  Serious: Yes (Death, Other)
  Sender: FDA-Public Use
  Company Number: CN-JNJFOC-20140914307

PATIENT
  Age: 74 Year
  Sex: Male

DRUGS (1)
  1. SPORANOX [Suspect]
     Active Substance: ITRACONAZOLE\SODIUM CHLORIDE
     Indication: LUNG INFECTION
     Route: 048
     Dates: start: 20121230, end: 20130112

REACTIONS (2)
  - Hepatocellular injury [Unknown]
  - Death [Fatal]

NARRATIVE: CASE EVENT DATE: 20130111
